FAERS Safety Report 8126401-6 (Version None)
Quarter: 2012Q1

REPORT INFORMATION
  Report Type: 
  Country: None (occurrence: None)
  Receive Date: 20120209
  Receipt Date: 20120110
  Transmission Date: 20120608
  Serious: Yes (Hospitalization, Other)
  Sender: FDA-Public Use
  Company Number: PHEH2011US012147

PATIENT
  Sex: Female

DRUGS (8)
  1. MULTI-VITAMINS [Concomitant]
  2. VITAMINE D3 [Concomitant]
  3. AFINITOR [Suspect]
     Indication: BREAST CANCER METASTATIC
     Dosage: 10 MG, QD
     Route: 048
     Dates: start: 20110621, end: 20111207
  4. BENICAR [Concomitant]
  5. TAMOXIFEN CITRATE [Concomitant]
  6. HYDROCODONE [Concomitant]
  7. LASIX [Concomitant]
  8. CRESTOR [Concomitant]

REACTIONS (5)
  - GASTROINTESTINAL PERFORATION [None]
  - ABDOMINAL PAIN [None]
  - INFECTIOUS PERITONITIS [None]
  - FLATULENCE [None]
  - PNEUMOBILIA [None]
